FAERS Safety Report 8093753-5 (Version None)
Quarter: 2012Q1

REPORT INFORMATION
  Report Type: 
  Country: None (occurrence: None)
  Receive Date: 20120129
  Receipt Date: 20111018
  Transmission Date: 20120608
  Serious: No
  Sender: FDA-Public Use
  Company Number: US-ABBOTT-11P-163-0866135-00

PATIENT
  Sex: Male
  Weight: 68.1 kg

DRUGS (4)
  1. HUMIRA [Suspect]
     Indication: BEHCET'S SYNDROME
     Route: 058
     Dates: start: 20080101, end: 20110601
  2. PREDNISONE TAB [Concomitant]
     Indication: BEHCET'S SYNDROME
  3. UNKNOWN STATIN [Concomitant]
     Indication: BLOOD CHOLESTEROL INCREASED
  4. HUMIRA [Suspect]
     Route: 058
     Dates: start: 20110601

REACTIONS (2)
  - OFF LABEL USE [None]
  - BLOOD URINE PRESENT [None]
